FAERS Safety Report 7706826-0 (Version None)
Quarter: 2011Q3

REPORT INFORMATION
  Report Type: 
  Country: None (occurrence: None)
  Receive Date: 20110818
  Receipt Date: 20110802
  Transmission Date: 20111222
  Serious: No
  Sender: FDA-Public Use
  Company Number: B0739270A

PATIENT
  Age: 34 Year
  Sex: Female

DRUGS (4)
  1. LAMIVUDINE [Suspect]
     Indication: HIV INFECTION
     Dates: start: 20050801
  2. ZIDOVUDINE [Suspect]
     Indication: HIV INFECTION
     Dates: start: 20050801
  3. ETONOGESTREL [Concomitant]
  4. EFAVIRENZ [Suspect]
     Indication: HIV INFECTION
     Dates: start: 20050801

REACTIONS (3)
  - ECTOPIC PREGNANCY [None]
  - MATERNAL EXPOSURE DURING PREGNANCY [None]
  - PREGNANCY WITH IMPLANT CONTRACEPTIVE [None]
